FAERS Safety Report 25879652 (Version 1)
Quarter: 2025Q4

REPORT INFORMATION
  Report Type: Report from Study
  Country: US (occurrence: US)
  Receive Date: 20251003
  Receipt Date: 20251003
  Transmission Date: 20260117
  Serious: No
  Sender: SANDOZ
  Company Number: US-SANDOZ-SDZ2025US024386

PATIENT
  Sex: Male

DRUGS (2)
  1. OMNITROPE [Suspect]
     Active Substance: SOMATROPIN
     Indication: Congenital cystic kidney disease
     Dosage: 0.4 MG, QD/STRENGTH 10 MG / 1.5 ML
     Route: 058
  2. OMNITROPE [Suspect]
     Active Substance: SOMATROPIN
     Indication: Congenital cystic kidney disease
     Dosage: 0.4 MG, QD/STRENGTH 10 MG / 1.5 ML
     Route: 058

REACTIONS (2)
  - Off label use [Unknown]
  - Device breakage [Unknown]
